FAERS Safety Report 8474913 (Version 4)
Quarter: 2013Q2

REPORT INFORMATION
  Report Type: Spontaneous
  Country: NL (occurrence: None)
  Receive Date: 20120313
  Receipt Date: 20130501
  Transmission Date: 20140414
  Serious: Yes (Death, Hospitalization, Other)
  Sender: FDA-Public Use
  Company Number: 2012000068

PATIENT
  Age: 64 Year
  Sex: Male

DRUGS (16)
  1. ACEON [Suspect]
     Indication: PRODUCT USED FOR UNKNOWN INDICATION
  2. SAXAGLIPTIN [Suspect]
     Indication: TYPE 2 DIABETES MELLITUS
     Dosage: DF, UNK
     Dates: start: 20110127, end: 20111118
  3. NOVOLOG [Suspect]
     Indication: TYPE 2 DIABETES MELLITUS
     Dosage: 64 IU
  4. LEVEMIR [Suspect]
     Indication: TYPE 2 DIABETES MELLITUS
     Dosage: 30 IU
  5. PLACEBO [Suspect]
     Dates: start: 20110127, end: 20111118
  6. SPIRIVA [Concomitant]
  7. FLIXONASE (FLUCTICASONE PROPIONATE) [Concomitant]
  8. SERETIDE (FLUTICASONE PROPIONATE, SALMETEROL XINAFOATE) [Concomitant]
  9. TAMSULOSIN HYDROCHLORIDE [Concomitant]
  10. METAMUCIL THERAPY FOR REGULARITY [Concomitant]
  11. VENTOLIN [Concomitant]
  12. LIPASE (LIPASE) [Concomitant]
  13. AMYLASE (AMYLASE) [Concomitant]
  14. ASPIRIN (ASPIRIN) [Concomitant]
  15. EZETIMIBE [Concomitant]
  16. NEXIUM [Concomitant]

REACTIONS (4)
  - Constipation [None]
  - Pancreatic calcification [None]
  - Adenocarcinoma pancreas [None]
  - Pancreatitis chronic [None]
